FAERS Safety Report 7688604-4 (Version None)
Quarter: 2011Q3

REPORT INFORMATION
  Report Type: 
  Country: None (occurrence: None)
  Receive Date: 20110817
  Receipt Date: 20110812
  Transmission Date: 20111222
  Serious: Yes (Other)
  Sender: FDA-Public Use
  Company Number: NL-AMGEN-NLDSP2011041572

PATIENT
  Age: 68 Year
  Sex: Male

DRUGS (8)
  1. PREDNISONE [Concomitant]
     Dosage: UNK
  2. SIMAVASTATIN [Concomitant]
     Dosage: UNK UNK, UNK
  3. NEXIUM [Concomitant]
     Dosage: UNK UNK, UNK
  4. METFFORMIN HYDROCHLORIDE [Concomitant]
     Dosage: UNK UNK, UNK
  5. ENBREL [Suspect]
     Indication: RHEUMATOID ARTHRITIS
     Dosage: 50 MG, WEEKLY
     Dates: start: 20110204
  6. TAMSULOSIN HCL [Concomitant]
     Dosage: UNK UNK, UNK
  7. PLAQUENIL [Concomitant]
     Dosage: UNK
  8. CRANBERRY                          /01512301/ [Concomitant]
     Dosage: UNK UNK, UNK

REACTIONS (1)
  - SILENT MYOCARDIAL INFARCTION [None]
